FAERS Safety Report 7365734-8 (Version None)
Quarter: 2011Q1

REPORT INFORMATION
  Report Type: 
  Country: None (occurrence: None)
  Receive Date: 20110322
  Receipt Date: 20110316
  Transmission Date: 20110831
  Serious: Yes (Other)
  Sender: FDA-Public Use
  Company Number: US-PFIZER INC-2011058623

PATIENT
  Sex: Female

DRUGS (5)
  1. EFFEXOR [Suspect]
     Dosage: 25 MG, 2X/DAY
  2. EFFEXOR [Suspect]
     Dosage: 50 MG, 2X/DAY
  3. EFFEXOR [Suspect]
     Indication: HOT FLUSH
     Dosage: 100 MG, 2X/DAY
  4. EFFEXOR [Suspect]
     Indication: DEPRESSION
     Dosage: 75 MG, 2X/DAY
  5. EFFEXOR [Suspect]
     Dosage: 25 MG, 1X/DAY

REACTIONS (2)
  - VERTIGO [None]
  - HYPERTENSION [None]
